FAERS Safety Report 5283721-0 (Version None)
Quarter: 2007Q1

REPORT INFORMATION
  Report Type: 
  Country: None (occurrence: None)
  Receive Date: 20070327
  Receipt Date: 20070315
  Transmission Date: 20070707
  Serious: Yes (Hospitalization)
  Sender: FDA-Public Use
  Company Number: SU-2007-006026

PATIENT
  Sex: Male

DRUGS (2)
  1. BENICAR [Suspect]
     Dosage: 40 MG QD PO
     Route: 048
     Dates: end: 20070101
  2. UNSPECIFIED MEDICATIONS [Concomitant]

REACTIONS (2)
  - NEPHRITIS [None]
  - RENAL FAILURE ACUTE [None]
